FAERS Safety Report 12266173 (Version 1)
Quarter: 2016Q2

REPORT INFORMATION
  Report Type: Spontaneous
  Country: US (occurrence: None)
  Receive Date: 20160413
  Receipt Date: 20160413
  Transmission Date: 20160815
  Serious: Yes (Death, Life-Threatening, Hospitalization, Disabling, Other)
  Sender: FDA-Public Use
  Company Number: None

PATIENT
  Age: 88 Year
  Sex: Male
  Weight: 86.18 kg

DRUGS (19)
  1. IMDUR [Concomitant]
     Active Substance: ISOSORBIDE MONONITRATE
  2. BENADRYL [Concomitant]
     Active Substance: DIPHENHYDRAMINE HYDROCHLORIDE
  3. ATORVASTATIN [Concomitant]
     Active Substance: ATORVASTATIN
  4. URIBEL [Suspect]
     Active Substance: HYOSCYAMINE SULFATE\METHENAMINE\METHYLENE BLUE\PHENYL SALICYLATE\SODIUM PHOSPHATE, MONOBASIC, MONOHYDRATE
     Indication: POSTOPERATIVE CARE
     Route: 048
     Dates: start: 20151002, end: 20151005
  5. BYSTOLIC [Concomitant]
     Active Substance: NEBIVOLOL HYDROCHLORIDE
  6. ALLOPURINOL. [Concomitant]
     Active Substance: ALLOPURINOL
  7. GARLIC. [Concomitant]
     Active Substance: GARLIC
  8. FLO-MAX [Concomitant]
  9. AMIODARONE [Concomitant]
     Active Substance: AMIODARONE
  10. OCUVITE [Concomitant]
     Active Substance: VITAMINS
  11. MULTI-VITAMIN [Concomitant]
     Active Substance: .ALPHA.-TOCOPHEROL ACETATE, DL-\ASCORBIC ACID\CYANOCOBALAMIN\FLUORIDE ION\FOLIC ACID\NIACIN\PYRIDOXINE\RIBOFLAVIN\THIAMINE\VITAMIN A\VITAMIN D
  12. AMBIEN [Concomitant]
     Active Substance: ZOLPIDEM TARTRATE
  13. TYLENOL [Concomitant]
     Active Substance: ACETAMINOPHEN
  14. BELLADONNA-OPIUM SUPP. [Suspect]
     Active Substance: BELLADONNA\OPIUM
     Indication: PROSTATE ABLATION
     Dosage: 16.2-60 M ONE SUPP RECTAL MTRA-OP.
     Route: 054
     Dates: start: 20151001
  15. NITROGLYCERIN S.L. [Concomitant]
  16. THYROID [Concomitant]
     Active Substance: LEVOTHYROXINE\LIOTHYRONINE
  17. PLAVIX [Concomitant]
     Active Substance: CLOPIDOGREL BISULFATE
  18. CALCITROL [Concomitant]
     Active Substance: CALCITRIOL
  19. LATANOPROST. [Concomitant]
     Active Substance: LATANOPROST

REACTIONS (12)
  - Distractibility [None]
  - Self-injurious ideation [None]
  - Fall [None]
  - Psychotic disorder [None]
  - Cardiac arrest [None]
  - Head injury [None]
  - Violence-related symptom [None]
  - Vertigo [None]
  - Respiratory distress [None]
  - Cognitive disorder [None]
  - Diet refusal [None]
  - Drug ineffective [None]

NARRATIVE: CASE EVENT DATE: 20151001
